FAERS Safety Report 15000781 (Version 3)
Quarter: 2018Q3

REPORT INFORMATION
  Report Type: Report from Study
  Country: IL (occurrence: IL)
  Receive Date: 20180612
  Receipt Date: 20180712
  Transmission Date: 20181010
  Serious: Yes (Hospitalization)
  Sender: FDA-Public Use
  Company Number: IL-JNJFOC-20160709120

PATIENT
  Age: 55 Year
  Sex: Male

DRUGS (3)
  1. DAIVONEX [Concomitant]
     Active Substance: CALCIPOTRIENE
     Route: 065
  2. STELARA [Suspect]
     Active Substance: USTEKINUMAB
     Indication: PSORIASIS
     Route: 058
     Dates: start: 20160124, end: 20180318
  3. DAIVOBET [Concomitant]
     Active Substance: BETAMETHASONE DIPROPIONATE\CALCIPOTRIENE
     Route: 065

REACTIONS (6)
  - Bacteraemia [Recovering/Resolving]
  - Drug effect incomplete [Not Recovered/Not Resolved]
  - Facial paralysis [Recovered/Resolved]
  - Underdose [Unknown]
  - Product leakage [Unknown]
  - Psoriasis [Recovering/Resolving]

NARRATIVE: CASE EVENT DATE: 201611
